FAERS Safety Report 7008399-7 (Version None)
Quarter: 2010Q3

REPORT INFORMATION
  Report Type: 
  Country: None (occurrence: None)
  Receive Date: 20100922
  Receipt Date: 20100913
  Transmission Date: 20110219
  Serious: Yes (Hospitalization)
  Sender: FDA-Public Use
  Company Number: B0674218A

PATIENT
  Sex: Male
  Weight: 6.8 kg

DRUGS (1)
  1. ZOVIRAX [Suspect]
     Indication: VARICELLA
     Dosage: 200MG FIVE TIMES PER DAY
     Route: 048
     Dates: start: 20100707, end: 20100713

REACTIONS (5)
  - GRAND MAL CONVULSION [None]
  - HYPONATRAEMIA [None]
  - IRRITABILITY [None]
  - METABOLIC ACIDOSIS [None]
  - OFF LABEL USE [None]
